FAERS Safety Report 8494839-3 (Version None)
Quarter: 2012Q3

REPORT INFORMATION
  Report Type: 
  Country: None (occurrence: None)
  Receive Date: 20120709
  Receipt Date: 20120707
  Transmission Date: 20120928
  Serious: Yes (Other)
  Sender: FDA-Public Use
  Company Number: US-PFIZER INC-2012162757

PATIENT
  Sex: Male
  Weight: 79.365 kg

DRUGS (5)
  1. LIPITOR [Suspect]
     Indication: BLOOD CHOLESTEROL INCREASED
     Dosage: 80 MG, 1X/DAY
     Route: 048
  2. ATENOLOL [Concomitant]
     Indication: HYPERTENSION
     Dosage: 50 MG, 1X/DAY
  3. EXFORGE [Concomitant]
     Indication: HYPERTENSION
     Dosage: [AMLODIPINE 5]/[VALSARTAN 160 MG], 1X/DAY
  4. HYDROCHLOROTHIAZIDE [Concomitant]
     Indication: HYPERTENSION
     Dosage: 25 MG, 1X/DAY
  5. TAMSULOSIN [Concomitant]
     Dosage: 0.4 MG, 1X/DAY

REACTIONS (2)
  - MUSCLE SPASMS [None]
  - DIABETES MELLITUS [None]
